FAERS Safety Report 8613678-3 (Version None)
Quarter: 2012Q3

REPORT INFORMATION
  Report Type: 
  Country: None (occurrence: None)
  Receive Date: 20120823
  Receipt Date: 20120815
  Transmission Date: 20120928
  Serious: Yes (Other)
  Sender: FDA-Public Use
  Company Number: BR-AMGEN-BRASP2012052702

PATIENT
  Age: 66 Year
  Sex: Female
  Weight: 85 kg

DRUGS (7)
  1. ENBREL [Suspect]
     Indication: RHEUMATOID ARTHRITIS
     Dosage: 50 MG, ONCE WEEKLY
     Route: 058
     Dates: start: 20100901, end: 20120101
  2. LOSARTAN POTASSIUM [Concomitant]
     Dosage: 100 MG, 2X/DAY
  3. OMEPRAZOLE [Concomitant]
     Dosage: 20 MG, 2X/DAY
  4. BROMAZEPAM [Concomitant]
     Dosage: 12 MG, 1X/DAY
  5. ARADOIS H [Concomitant]
     Dosage: 50 MG, 1X/DAY
  6. ALDOMET                            /00000101/ [Concomitant]
     Dosage: 200 MG, 1X/DAY
  7. LASIX [Concomitant]
     Dosage: 40 MG, 1X/DAY

REACTIONS (8)
  - ABASIA [None]
  - BLOOD PRESSURE INCREASED [None]
  - WEIGHT INCREASED [None]
  - PAIN [None]
  - EYE DISORDER [None]
  - DRY THROAT [None]
  - SKIN WRINKLING [None]
  - APHONIA [None]
